FAERS Safety Report 25332499 (Version 1)
Quarter: 2025Q2

REPORT INFORMATION
  Report Type: Spontaneous
  Country: TW (occurrence: TW)
  Receive Date: 20250519
  Receipt Date: 20250519
  Transmission Date: 20250717
  Serious: Yes (Death, Hospitalization, Other)
  Sender: NOVARTIS
  Company Number: TW-002147023-NVSC2025TW079589

PATIENT
  Age: 60 Year
  Sex: Male

DRUGS (24)
  1. TRAMETINIB [Suspect]
     Active Substance: TRAMETINIB
     Indication: Lung adenocarcinoma
     Route: 065
  2. TRAMETINIB [Suspect]
     Active Substance: TRAMETINIB
     Indication: EGFR gene mutation
  3. TRAMETINIB [Suspect]
     Active Substance: TRAMETINIB
     Indication: Metastases to central nervous system
  4. RAMUCIRUMAB [Suspect]
     Active Substance: RAMUCIRUMAB
     Indication: Lung adenocarcinoma
     Route: 065
     Dates: start: 2020
  5. RAMUCIRUMAB [Suspect]
     Active Substance: RAMUCIRUMAB
     Indication: EGFR gene mutation
  6. RAMUCIRUMAB [Suspect]
     Active Substance: RAMUCIRUMAB
     Indication: Metastases to central nervous system
  7. ERLOTINIB [Suspect]
     Active Substance: ERLOTINIB
     Indication: Lung adenocarcinoma
     Route: 065
     Dates: start: 2020
  8. ERLOTINIB [Suspect]
     Active Substance: ERLOTINIB
     Indication: EGFR gene mutation
  9. ERLOTINIB [Suspect]
     Active Substance: ERLOTINIB
     Indication: Metastases to central nervous system
  10. PEMETREXED [Suspect]
     Active Substance: PEMETREXED
     Indication: Lung adenocarcinoma
     Route: 065
     Dates: start: 2021
  11. PEMETREXED [Suspect]
     Active Substance: PEMETREXED
     Indication: EGFR gene mutation
  12. PEMETREXED [Suspect]
     Active Substance: PEMETREXED
     Indication: Metastases to central nervous system
  13. CISPLATIN [Suspect]
     Active Substance: CISPLATIN
     Indication: Lung adenocarcinoma
     Route: 065
     Dates: start: 2021
  14. CISPLATIN [Suspect]
     Active Substance: CISPLATIN
     Indication: EGFR gene mutation
  15. CISPLATIN [Suspect]
     Active Substance: CISPLATIN
     Indication: Metastases to central nervous system
  16. DOCETAXEL [Suspect]
     Active Substance: DOCETAXEL
     Indication: Lung adenocarcinoma
     Route: 065
     Dates: start: 2022
  17. DOCETAXEL [Suspect]
     Active Substance: DOCETAXEL
     Indication: EGFR gene mutation
  18. DOCETAXEL [Suspect]
     Active Substance: DOCETAXEL
     Indication: Metastases to central nervous system
  19. BEVACIZUMAB [Suspect]
     Active Substance: BEVACIZUMAB
     Indication: Lung adenocarcinoma
     Route: 065
     Dates: start: 2022
  20. BEVACIZUMAB [Suspect]
     Active Substance: BEVACIZUMAB
     Indication: EGFR gene mutation
  21. BEVACIZUMAB [Suspect]
     Active Substance: BEVACIZUMAB
     Indication: Metastases to central nervous system
  22. OSIMERTINIB [Suspect]
     Active Substance: OSIMERTINIB
     Indication: Lung adenocarcinoma
     Route: 065
     Dates: start: 2022
  23. OSIMERTINIB [Suspect]
     Active Substance: OSIMERTINIB
     Indication: EGFR gene mutation
  24. OSIMERTINIB [Suspect]
     Active Substance: OSIMERTINIB
     Indication: Metastases to central nervous system

REACTIONS (9)
  - Death [Fatal]
  - Haematochezia [Unknown]
  - Metastases to bladder [Unknown]
  - Intestinal metastasis [Unknown]
  - Malignant pleural effusion [Unknown]
  - Haematuria [Unknown]
  - Haematological infection [Unknown]
  - Performance status decreased [Unknown]
  - Off label use [Unknown]
